FAERS Safety Report 5377212-6 (Version None)
Quarter: 2007Q2

REPORT INFORMATION
  Report Type: 
  Country: None (occurrence: None)
  Receive Date: 20070629
  Receipt Date: 20070629
  Transmission Date: 20071010
  Serious: Yes (Hospitalization, Other)
  Sender: FDA-Public Use
  Company Number: None

PATIENT
  Age: 58 Year
  Sex: Male
  Weight: 89.8122 kg

DRUGS (4)
  1. PHOSPHOSODA UNFLAVORED [Suspect]
     Indication: SIGMOIDOSCOPY
     Dosage: 45 ML;X1;PO
     Route: 048
     Dates: start: 20040120, end: 20040120
  2. HYDROCHLOROTHIAZIDE [Concomitant]
  3. LOVASTATIN [Concomitant]
  4. VIAGRA [Concomitant]

REACTIONS (5)
  - GLOMERULOSCLEROSIS [None]
  - KIDNEY FIBROSIS [None]
  - NEPHRITIS INTERSTITIAL [None]
  - NEPHROGENIC ANAEMIA [None]
  - RENAL FAILURE ACUTE [None]
